FAERS Safety Report 11843573 (Version 3)
Quarter: 2019Q2

REPORT INFORMATION
  Report Type: Spontaneous
  Country: BR (occurrence: BR)
  Receive Date: 20151217
  Receipt Date: 20190530
  Transmission Date: 20190711
  Serious: Yes (Other)
  Sender: FDA-Public Use
  Company Number: BR-AMGEN-BRASP2015120596

PATIENT
  Age: 58 Year
  Sex: Female
  Weight: 46 kg

DRUGS (24)
  1. SIMVASTATIN. [Concomitant]
     Active Substance: SIMVASTATIN
     Indication: BLOOD CHOLESTEROL
     Dosage: 20 MG, UNK
  2. HYDROCHLOROTHIAZIDE. [Concomitant]
     Active Substance: HYDROCHLOROTHIAZIDE
     Dosage: 1 TABLET OF 25MG IN THE MORNING
  3. ENALAPRIL MALEATE. [Concomitant]
     Active Substance: ENALAPRIL MALEATE
     Dosage: 1 TABLET OF 20MG IN THE MORNING
  4. ALENDRONATE SODIUM. [Concomitant]
     Active Substance: ALENDRONATE SODIUM
     Dosage: 1 TABLET OF 70 MG WEEKLY
  5. PREDNISONE. [Concomitant]
     Active Substance: PREDNISONE
     Dosage: 2 TABLETS OF 5MG (10MG) AFTER BREAKFAST AND 1 TABLET (5MG) AFTER SNACK
  6. OMEPRAZOLE. [Concomitant]
     Active Substance: OMEPRAZOLE
     Dosage: 2 TABLETS OF 20MG (40MG) FASTING
  7. ENALAPRIL [Concomitant]
     Active Substance: ENALAPRIL
     Dosage: 5 MG, 1X/DAY
     Dates: start: 2007
  8. ENBREL [Suspect]
     Active Substance: ETANERCEPT
     Indication: RHEUMATOID ARTHRITIS
     Dosage: 50 MG, ONCE WEEKLY
     Route: 058
     Dates: start: 20100428
  9. DIPYRONE [Concomitant]
     Active Substance: DIPYRONE
     Dosage: 500MG AS NEEDED (WHEN PAIN)
  10. AAS [Concomitant]
     Active Substance: ASPIRIN
     Dosage: 1 TABLET (100MG) ONCE DAILY
     Dates: start: 2008
  11. OMEPRAZOLE. [Concomitant]
     Active Substance: OMEPRAZOLE
     Indication: GASTRIC DISORDER
     Dosage: 1 TABLET IN THE MORNING
  12. CALCIUM CITRATE WITH VITAMIN D3 [Concomitant]
     Active Substance: CALCIUM CITRATE\CHOLECALCIFEROL
     Dosage: 1 TABLET AFTER LUNCH AND DINNER
  13. CONDROFLEX [Concomitant]
     Active Substance: CHONDROITIN SULFATE (BOVINE)\GLUCOSAMINE SULFATE
     Dosage: 1 ENVELOPE IN WATER AFTER LUNCH
  14. PREDNISONE. [Concomitant]
     Active Substance: PREDNISONE
     Indication: RHEUMATOID ARTHRITIS
     Dosage: 5 MG, 1X/DAY
     Route: 065
     Dates: start: 1981
  15. CHLOROTHIAZIDE. [Concomitant]
     Active Substance: CHLOROTHIAZIDE
     Dosage: 25 MG, 1X/DAY
     Dates: start: 2007
  16. VITAMIN D3 [Concomitant]
     Active Substance: CHOLECALCIFEROL
     Dosage: UNK
  17. SULFASALAZINE. [Concomitant]
     Active Substance: SULFASALAZINE
     Dosage: 2 TABLETS OF 500MG (1000MG) AFTER BREASKFAST, LUNCH AND DINNER
  18. FOLIC ACID. [Concomitant]
     Active Substance: FOLIC ACID
     Dosage: 2 TABLET OF 5MG (10 MG) AFTER LUNCH
     Route: 065
  19. DIGESAN [BROMOPRIDE] [Concomitant]
     Dosage: UNK
  20. DICLOFENAC SODIUM. [Concomitant]
     Active Substance: DICLOFENAC SODIUM
     Dosage: 1 TABLET AFTER BREAKFAST, LUNCH AND DINNER
  21. PROTOS [STRONTIUM RANELATE] [Concomitant]
     Dosage: UNK
  22. DIPYRONE [Concomitant]
     Active Substance: DIPYRONE
     Dosage: 2 TABLETS OF 500MG (1000MG) AS NEEDED UNTIL 4 TIMES DAILY
  23. ALGINAC [Concomitant]
     Active Substance: CYANOCOBALAMIN\DICLOFENAC SODIUM\PYRIDOXINE HYDROCHLORIDE\THIAMINE MONONITRATE
     Dosage: 1000 MG, 1X/DAY
     Dates: start: 2007
  24. METHOTREXATE. [Concomitant]
     Active Substance: METHOTREXATE
     Dosage: UNK
     Dates: start: 20100428

REACTIONS (7)
  - Product complaint [Unknown]
  - Injection site haematoma [Unknown]
  - Injection site erythema [Unknown]
  - Intervertebral disc protrusion [Unknown]
  - Infection [Unknown]
  - Injection site pruritus [Unknown]
  - Injection site pain [Unknown]

NARRATIVE: CASE EVENT DATE: 201111
